FAERS Safety Report 7361248-X (Version None)
Quarter: 2011Q1

REPORT INFORMATION
  Report Type: 
  Country: None (occurrence: None)
  Receive Date: 20110318
  Receipt Date: 20110311
  Transmission Date: 20110831
  Serious: Yes (Other)
  Sender: FDA-Public Use
  Company Number: US-SANOFI-AVENTIS-2011SA015905

PATIENT
  Sex: Female

DRUGS (2)
  1. SOLOSTAR [Suspect]
     Dates: start: 20110301
  2. LANTUS [Suspect]
     Indication: DIABETES MELLITUS
     Dosage: DOSE:6 UNIT(S)
     Route: 058
     Dates: start: 20110301

REACTIONS (5)
  - PROTEIN TOTAL ABNORMAL [None]
  - RENAL DISORDER [None]
  - BLOOD GLUCOSE INCREASED [None]
  - URETHRAL DILATATION [None]
  - CONDITION AGGRAVATED [None]
